FAERS Safety Report 9613075 (Version 3)
Quarter: 2014Q1

REPORT INFORMATION
  Report Type: Report from Study
  Country: KR (occurrence: KR)
  Receive Date: 20131010
  Receipt Date: 20140128
  Transmission Date: 20141002
  Serious: Yes (Hospitalization, Other)
  Sender: FDA-Public Use
  Company Number: PHHY2013KR112923

PATIENT
  Age: 32 Year
  Sex: Female
  Weight: 50.9 kg

DRUGS (6)
  1. AMN107 [Suspect]
     Indication: CHRONIC MYELOID LEUKAEMIA
     Dosage: 800 MG, DAILY
     Route: 048
     Dates: start: 20130711, end: 20130724
  2. AMN107 [Suspect]
     Dosage: 400 MG, DAILY
     Route: 048
     Dates: start: 20130725, end: 20130822
  3. AMN107 [Suspect]
     Dosage: 200 MG, DAILY
     Route: 048
     Dates: start: 20130823
  4. PROPACETAMOL [Concomitant]
     Dosage: UNK UKN, UNK
     Dates: start: 20130816
  5. FILGRASTIM [Concomitant]
     Indication: LEUKOPENIA
     Dosage: 300 UG
     Dates: start: 20130816
  6. AUGMENTIN [Concomitant]
     Dosage: 1875 MG
     Dates: start: 20130808, end: 20130816

REACTIONS (6)
  - Pyrexia [Recovered/Resolved]
  - Splenomegaly [Unknown]
  - Renal disorder [Unknown]
  - Ureteral disorder [Unknown]
  - Hepatomegaly [Unknown]
  - Gingivitis [Unknown]
